FAERS Safety Report 6270236-6 (Version None)
Quarter: 2009Q3

REPORT INFORMATION
  Report Type: 
  Country: None (occurrence: None)
  Receive Date: 20090716
  Receipt Date: 20090629
  Transmission Date: 20100115
  Serious: No
  Sender: FDA-Public Use
  Company Number: US-BAYER-200912022BCC

PATIENT
  Age: 67 Year
  Sex: Female
  Weight: 64 kg

DRUGS (2)
  1. ALEVE [Suspect]
     Indication: BACK PAIN
     Dosage: TOTAL DAILY DOSE: 220 MG  UNIT DOSE: 220 MG
     Route: 048
     Dates: start: 20090601, end: 20090601
  2. PROVENTIL-HFA [Concomitant]
     Indication: DRUG USE FOR UNKNOWN INDICATION
     Route: 055

REACTIONS (2)
  - ABDOMINAL DISCOMFORT [None]
  - HOT FLUSH [None]
